FAERS Safety Report 20844813 (Version 2)
Quarter: 2022Q2

REPORT INFORMATION
  Report Type: Report from Study
  Country: DE (occurrence: DE)
  Receive Date: 20220518
  Receipt Date: 20220614
  Transmission Date: 20220721
  Serious: Yes (Other)
  Sender: FDA-Public Use
  Company Number: DE-NOVARTISPH-NVSC2022DE109518

PATIENT
  Sex: Male

DRUGS (1)
  1. NELARABINE [Suspect]
     Active Substance: NELARABINE
     Indication: Acute lymphocytic leukaemia
     Dosage: 2520 MG
     Route: 042
     Dates: start: 20211207, end: 20211211

REACTIONS (1)
  - Polyneuropathy [Recovered/Resolved]

NARRATIVE: CASE EVENT DATE: 20220218
